FAERS Safety Report 20684133 (Version 1)
Quarter: 2022Q2

REPORT INFORMATION
  Report Type: Spontaneous
  Country: US (occurrence: None)
  Receive Date: 20220405
  Receipt Date: 20220405
  Transmission Date: 20220721
  Serious: Yes (Other)
  Sender: FDA-Public Use
  Company Number: None

PATIENT
  Age: 54 Year
  Sex: Female
  Weight: 70.31 kg

DRUGS (3)
  1. LEVETIRACETAM [Suspect]
     Active Substance: LEVETIRACETAM
     Indication: Seizure
     Dosage: FREQUENCY : TWICE A DAY;?
     Route: 048
  2. WARFARIN [Concomitant]
  3. ARMOUR THYROID [Concomitant]

REACTIONS (4)
  - Urticaria [None]
  - Pruritus [None]
  - Scratch [None]
  - Contusion [None]

NARRATIVE: CASE EVENT DATE: 20101201
